FAERS Safety Report 10634122 (Version 1)
Quarter: 2014Q4

REPORT INFORMATION
  Report Type: Spontaneous
  Country: US (occurrence: None)
  Receive Date: 20141203
  Receipt Date: 20141203
  Transmission Date: 20150529
  Serious: Yes (Other)
  Sender: FDA-Public Use
  Company Number: 2014AP005647

PATIENT
  Age: 9 Year
  Sex: Male
  Weight: 30 kg

DRUGS (5)
  1. FERRIPROX [Suspect]
     Active Substance: DEFERIPRONE
     Indication: CONGENITAL ANAEMIA
     Route: 048
     Dates: start: 20140829
  2. SYNTHROID [Concomitant]
     Active Substance: LEVOTHYROXINE SODIUM
  3. KEPPRA [Concomitant]
     Active Substance: LEVETIRACETAM
  4. EXJADE (DEFERASIROX) [Concomitant]
  5. FERRIPROX [Suspect]
     Active Substance: DEFERIPRONE
     Indication: HAEMOCHROMATOSIS
     Route: 048
     Dates: start: 20140829

REACTIONS (2)
  - Nasopharyngitis [None]
  - Neutropenia [None]

NARRATIVE: CASE EVENT DATE: 20141013
